FAERS Safety Report 5157846-4 (Version None)
Quarter: 2006Q4

REPORT INFORMATION
  Report Type: 
  Country: None (occurrence: None)
  Receive Date: 20061120
  Receipt Date: 20061120
  Transmission Date: 20070319
  Serious: Yes (Other)
  Sender: FDA-Public Use
  Company Number: None

PATIENT
  Age: 22 Year
  Sex: Female
  Weight: 58.514 kg

DRUGS (3)
  1. ORTHO-NOVUM 1/35 [Suspect]
     Indication: CONTRACEPTION
     Dosage: 1 TABLET 1 TAB DAILY PO
     Route: 048
  2. MYLANTA MAXIMUM STRENGTH JOHNSON AND JOHNSON, MERCK [Suspect]
     Indication: ANTACID THERAPY
     Dosage: 2 TEASPOONS PRN PO
     Route: 048
  3. MYLANTA MAXIMUM STRENGTH JOHNSON AND JOHNSON, MERCK [Suspect]
     Indication: FLATULENCE
     Dosage: 2 TEASPOONS PRN PO
     Route: 048

REACTIONS (3)
  - DRUG INTERACTION [None]
  - DYSPEPSIA [None]
  - METRORRHAGIA [None]
